FAERS Safety Report 10057914 (Version 1)
Quarter: 2014Q2

REPORT INFORMATION
  Report Type: Spontaneous
  Country: US (occurrence: US)
  Receive Date: 20140404
  Receipt Date: 20140404
  Transmission Date: 20141212
  Serious: Yes (Other)
  Sender: FDA-Public Use
  Company Number: US-AMGEN-USASP2014023187

PATIENT
  Age: 55 Year
  Sex: Female

DRUGS (1)
  1. ENBREL [Suspect]
     Indication: PSORIATIC ARTHROPATHY
     Dosage: 50 MG, QWK
     Route: 065
     Dates: start: 20060715

REACTIONS (13)
  - Intervertebral disc protrusion [Not Recovered/Not Resolved]
  - Nerve root compression [Not Recovered/Not Resolved]
  - Lumbar spinal stenosis [Not Recovered/Not Resolved]
  - Intervertebral disc degeneration [Not Recovered/Not Resolved]
  - Intervertebral disc annular tear [Not Recovered/Not Resolved]
  - Exostosis [Not Recovered/Not Resolved]
  - Throat irritation [Not Recovered/Not Resolved]
  - Rhinorrhoea [Not Recovered/Not Resolved]
  - Respiratory tract congestion [Not Recovered/Not Resolved]
  - Fall [Recovered/Resolved]
  - Lip injury [Recovered/Resolved]
  - Tooth injury [Recovered/Resolved]
  - Joint injury [Recovered/Resolved]
